FAERS Safety Report 8661150 (Version 2)
Quarter: 2012Q4

REPORT INFORMATION
  Report Type: 
  Country: DE (occurrence: DE)
  Receive Date: 20120711
  Receipt Date: 20121029
  Transmission Date: 20130627
  Serious: Yes (Life-Threatening, Hospitalization)
  Sender: FDA-Public Use
  Company Number: DE-ROCHE-1086175

PATIENT
  Age: 58 Year
  Sex: Male
  Weight: 67 kg

DRUGS (12)
  1. MABTHERA [Suspect]
     Indication: RHEUMATOID ARTHRITIS
     Route: 042
     Dates: start: 200612, end: 201201
  2. TUMOR NECROSIS FACTOR NOS [Suspect]
     Indication: RHEUMATOID ARTHRITIS
     Dosage: Name: TNF antibody
     Route: 065
  3. PREDNISOLON [Concomitant]
     Indication: RHEUMATOID ARTHRITIS
  4. CALCIUM D3 [Concomitant]
     Indication: OSTEOPOROSIS
  5. ALENDRONAT [Concomitant]
     Indication: OSTEOPOROSIS
  6. OMEP [Concomitant]
     Indication: PROPHYLAXIS AGAINST GASTROINTESTINAL ULCER
  7. ASS [Concomitant]
     Indication: CORONARY ARTERY DISEASE
  8. FUROSEMIDE [Concomitant]
  9. ENALAPRIL [Concomitant]
  10. SIMVASTATIN [Concomitant]
  11. ALLOPURINOL [Concomitant]
  12. NOVAMINSULFON [Concomitant]

REACTIONS (2)
  - Metastatic renal cell carcinoma [Not Recovered/Not Resolved]
  - Renal cell carcinoma recurrent [Not Recovered/Not Resolved]
